FAERS Safety Report 5164337-3 (Version None)
Quarter: 2006Q4

REPORT INFORMATION
  Report Type: 
  Country: None (occurrence: None)
  Receive Date: 20061205
  Receipt Date: 20061130
  Transmission Date: 20070319
  Serious: Yes (Death, Other)
  Sender: FDA-Public Use
  Company Number: 2006UW26853

PATIENT
  Age: 54 Year
  Sex: Female
  Weight: 47.2 kg

DRUGS (15)
  1. SEROQUEL [Suspect]
     Indication: BIPOLAR DISORDER
     Dosage: STARTER PACK SAMPLES
     Route: 048
     Dates: start: 20061120
  2. BONIVA [Concomitant]
     Route: 042
  3. VALIUM [Concomitant]
  4. OXYCONTIN [Concomitant]
  5. PERCOCET [Concomitant]
  6. ACCUPRIL [Concomitant]
  7. CARDIZEM CD [Concomitant]
  8. CREON [Concomitant]
  9. COMBIVENT [Concomitant]
     Route: 055
  10. NEURONTIN [Concomitant]
  11. LANTUS [Concomitant]
  12. INSULIN SLIDING SCALE [Concomitant]
  13. INSULIN [Concomitant]
  14. PLAVIX [Concomitant]
  15. ZOCOR [Concomitant]

REACTIONS (5)
  - ACUTE CORONARY SYNDROME [None]
  - APPENDICITIS PERFORATED [None]
  - CARDIAC ARREST [None]
  - ELECTROLYTE IMBALANCE [None]
  - SUDDEN DEATH [None]
